FAERS Safety Report 18589161 (Version 1)
Quarter: 2020Q4

REPORT INFORMATION
  Report Type: Spontaneous
  Country: JP (occurrence: JP)
  Receive Date: 20201208
  Receipt Date: 20201208
  Transmission Date: 20210114
  Serious: Yes (Other)
  Sender: FDA-Public Use
  Company Number: JP-GLAXOSMITHKLINE-JP2020238194

PATIENT
  Age: 40 Year
  Sex: Male

DRUGS (29)
  1. THEO-DUR [Concomitant]
     Active Substance: THEOPHYLLINE ANHYDROUS
     Indication: ASTHMA
     Dosage: 200 MG, QD AFTER BREAKFAST
  2. ADALAT-CR TABLET [Concomitant]
     Dosage: 20 MG
  3. BAKTAR COMBINATION TABLETS [Concomitant]
     Active Substance: SULFAMETHOXAZOLE\TRIMETHOPRIM
     Dosage: 1 DF
  4. FERROMIA TABLETS [Concomitant]
     Dosage: 100 MG
  5. ROZEREM TABLETS [Concomitant]
     Dosage: 8 MG
  6. LIVALO TABLETS [Concomitant]
     Dosage: 1 MG
  7. ONETRAM TABLETS [Concomitant]
     Dosage: 100 MG 2 TABLETS, TAKING 1 TABLET AFTER ADJUSTMENT
     Route: 048
  8. LOXONIN TAPE [Concomitant]
     Active Substance: LOXOPROFEN SODIUM DIHYDRATE
     Indication: SPINAL PAIN
     Dosage: 100 MG, QD
     Route: 061
  9. HYALEIN OPHTHALMIC SOLUTION [Concomitant]
     Dosage: INSTRUCTED TO USE ONCE DAILY, SOMETIMES USING A FEW TIMES DAILY
     Route: 047
  10. RELVAR ELLIPTA [Suspect]
     Active Substance: FLUTICASONE FUROATE\VILANTEROL TRIFENATATE
     Indication: ASTHMA
     Dosage: 200 UG, QD
     Route: 055
     Dates: start: 2020, end: 2020
  11. DESYREL TABLETS [Concomitant]
     Dosage: 50 MG
  12. TRACLEER TABLETS [Concomitant]
     Dosage: 250 MG
  13. TALION TABLETS [Concomitant]
     Dosage: 20 MG
  14. SINGULAIR TABLETS [Concomitant]
     Dosage: 10 MG
  15. ADCIRCA [Concomitant]
     Active Substance: TADALAFIL
     Dosage: 40 MG
  16. DANTRIUM CAPSULES [Concomitant]
     Dosage: 75 MG
  17. ISONIAZID. [Concomitant]
     Active Substance: ISONIAZID
     Dosage: 2 DF
  18. TRELEGY ELLIPTA [Suspect]
     Active Substance: FLUTICASONE FUROATE\UMECLIDINIUM BROMIDE\VILANTEROL TRIFENATATE
     Indication: ASTHMA
     Dosage: 100 UG, QD
     Route: 055
     Dates: start: 2020, end: 2020
  19. PREDONINE [Concomitant]
     Active Substance: PREDNISOLONE
     Dosage: 5 MG
  20. NASONEX [Concomitant]
     Active Substance: MOMETASONE FUROATE
     Dosage: 2 SPRAYS TO EACH NASAL CAVITY, QD
  21. TRELEGY ELLIPTA [Suspect]
     Active Substance: FLUTICASONE FUROATE\UMECLIDINIUM BROMIDE\VILANTEROL TRIFENATATE
     Dosage: 50 UG, BID
     Route: 055
     Dates: start: 2020
  22. SYMBICORT [Concomitant]
     Active Substance: BUDESONIDE\FORMOTEROL FUMARATE DIHYDRATE
     Indication: ASTHMA
     Dosage: UNK UNK, BID
     Route: 055
  23. IMURAN TABLETS [Concomitant]
     Dosage: 100 MG
  24. METHYCOBAL TABLET [Concomitant]
     Dosage: 1500 UG
  25. ALDACTONE-A TABLETS [Concomitant]
     Dosage: 2 DF
  26. SHAKUYAKUKANZOTO EXTRACT [Concomitant]
     Dosage: 1 DF, TID
  27. CARELOAD LA TABLETS [Concomitant]
     Dosage: 360 UG
  28. ACTONEL TABLETS [Concomitant]
     Dosage: 75 MG ONCE A MONTH
  29. TAKECAB TABLETS [Concomitant]
     Active Substance: VONOPRAZAN FUMARATE
     Dosage: 20 MG

REACTIONS (3)
  - Hepatitis [Unknown]
  - Product use issue [Unknown]
  - Cough [Recovered/Resolved]

NARRATIVE: CASE EVENT DATE: 2020
